FAERS Safety Report 22263699 (Version 1)
Quarter: 2023Q2

REPORT INFORMATION
  Report Type: Spontaneous
  Country: US (occurrence: US)
  Receive Date: 20230428
  Receipt Date: 20230428
  Transmission Date: 20230721
  Serious: No
  Sender: FDA-Public Use
  Company Number: US-TARO PHARMACEUTICALS USA INC.-2022TAR01388

PATIENT

DRUGS (1)
  1. FLUOROURACIL [Suspect]
     Active Substance: FLUOROURACIL
     Indication: Product used for unknown indication
     Dosage: UNK, BID, 12 HOURS APART, 3 OR 4 INCH EACH TIME TO COVER SUFFICIENTLY THE WHOLE AREA, MAINLY ON FORE
     Route: 061
     Dates: start: 20221105

REACTIONS (2)
  - Pigmentation disorder [Not Recovered/Not Resolved]
  - Product quality issue [Unknown]

NARRATIVE: CASE EVENT DATE: 20221101
